FAERS Safety Report 5250831-3 (Version None)
Quarter: 2007Q1

REPORT INFORMATION
  Report Type: 
  Country: None (occurrence: None)
  Receive Date: 20070228
  Receipt Date: 20060731
  Transmission Date: 20070707
  Serious: Yes (Other)
  Sender: FDA-Public Use
  Company Number: US-GLAXOSMITHKLINE-A0612194A

PATIENT
  Age: 18 Year
  Sex: Female
  Weight: 53.6 kg

DRUGS (3)
  1. LAMICTAL [Suspect]
     Indication: BIPOLAR DISORDER
     Dosage: 25MG PER DAY
     Route: 048
     Dates: start: 20060627, end: 20060712
  2. ABILIFY [Concomitant]
  3. ATIVAN [Concomitant]

REACTIONS (3)
  - LIP SWELLING [None]
  - RASH [None]
  - SWOLLEN TONGUE [None]
